FAERS Safety Report 9279052 (Version 1)
Quarter: 2013Q2

REPORT INFORMATION
  Report Type: Report from Study
  Country: JP (occurrence: JP)
  Receive Date: 20130508
  Receipt Date: 20130508
  Transmission Date: 20140414
  Serious: Yes (Hospitalization)
  Sender: FDA-Public Use
  Company Number: JP-BRISTOL-MYERS SQUIBB COMPANY-14955611

PATIENT
  Age: 43 Year
  Sex: Female
  Weight: 66 kg

DRUGS (3)
  1. ERBITUX SOLN FOR INF 5MG/ML [Suspect]
     Indication: COLON CANCER
     Dosage: 26TH INFUSION?REC INF: 03AUG09?400MG(22DEC08-)?RESUMED ON 24AUG09
     Route: 042
     Dates: start: 20081215, end: 20081215
  2. VENA [Concomitant]
     Indication: PREMEDICATION
     Dosage: TABS
     Route: 048
     Dates: start: 20081215
  3. DEXAMETHASONE SODIUM PHOSPHATE [Concomitant]
     Indication: PREMEDICATION
     Dosage: INCLUDING SKIPPED WEEKS
     Route: 041
     Dates: start: 20081215

REACTIONS (1)
  - Large intestine perforation [Recovered/Resolved]
